FAERS Safety Report 7769772-2 (Version None)
Quarter: 2011Q3

REPORT INFORMATION
  Report Type: 
  Country: None (occurrence: None)
  Receive Date: 20110922
  Receipt Date: 20100527
  Transmission Date: 20111222
  Serious: Yes (Other)
  Sender: FDA-Public Use
  Company Number: US-ASTRAZENECA-2010SE51052

PATIENT
  Age: 50 Year
  Sex: Male

DRUGS (12)
  1. SEROQUEL [Suspect]
     Route: 048
     Dates: start: 20040521
  2. XANAX [Concomitant]
     Dosage: 1 MG BID AND 3 AT HS
     Route: 048
     Dates: start: 20090101
  3. LEXAPRO [Concomitant]
     Route: 048
     Dates: start: 20040101
  4. VIAGRA [Concomitant]
     Dates: start: 20010101
  5. COGENTIN [Concomitant]
     Dates: start: 20030101
  6. ZYPREXA [Concomitant]
     Dates: start: 20030101
  7. XANAX [Concomitant]
     Route: 048
     Dates: start: 20030101
  8. VIAGRA [Concomitant]
     Dates: start: 20030101
  9. LEXAPRO [Concomitant]
     Dates: start: 20090101
  10. SEROQUEL [Suspect]
     Dosage: 300 MG 2 TAB AM AND 2 AT NOON
     Route: 048
     Dates: start: 20090511
  11. ZYPREXA [Concomitant]
     Dates: start: 20040101
  12. DEPAKOTE [Concomitant]
     Dosage: 500 MG 2 TAB AM AND 2 AT NOON
     Dates: start: 20090101

REACTIONS (4)
  - DIABETES MELLITUS [None]
  - BIPOLAR I DISORDER [None]
  - MOOD ALTERED [None]
  - SUICIDAL IDEATION [None]
